FAERS Safety Report 16256211 (Version 1)
Quarter: 2019Q2

REPORT INFORMATION
  Report Type: Spontaneous
  Country: US (occurrence: US)
  Receive Date: 20190430
  Receipt Date: 20190430
  Transmission Date: 20190711
  Serious: No
  Sender: FDA-Public Use
  Company Number: US-PFIZER INC-2019177376

PATIENT
  Age: 40 Year
  Sex: Male

DRUGS (2)
  1. LYRICA [Suspect]
     Active Substance: PREGABALIN
     Indication: NEURALGIA
     Dosage: 75 MG, 3X/DAY
  2. LYRICA [Suspect]
     Active Substance: PREGABALIN
     Indication: CEREBROVASCULAR ACCIDENT

REACTIONS (1)
  - Tinnitus [Unknown]
